FAERS Safety Report 6344297-X (Version None)
Quarter: 2009Q3

REPORT INFORMATION
  Report Type: 
  Country: None (occurrence: None)
  Receive Date: 20090908
  Receipt Date: 20090901
  Transmission Date: 20100115
  Serious: Yes (Death)
  Sender: FDA-Public Use
  Company Number: US-ROCHE-646638

PATIENT
  Sex: Male
  Weight: 54.4 kg

DRUGS (12)
  1. DIAZEPAM [Interacting]
     Indication: DRUG USE FOR UNKNOWN INDICATION
     Route: 065
  2. DIAZEPAM [Interacting]
     Dosage: OVERDOSE
     Route: 065
  3. METHADONE HCL [Interacting]
     Indication: DRUG USE FOR UNKNOWN INDICATION
     Route: 065
  4. METHADONE HCL [Interacting]
     Dosage: OVERDOSE
     Route: 065
  5. OXYCODONE [Interacting]
     Indication: DRUG USE FOR UNKNOWN INDICATION
     Route: 065
  6. OXYCODONE [Interacting]
     Dosage: OVERDOSE (TOXIC CONCENTRATION)
     Route: 065
  7. MDMA [Interacting]
     Indication: DRUG USE FOR UNKNOWN INDICATION
     Dosage: DRUG AS : 3, 4-MDMA (ECSTASY)
     Route: 065
  8. MDMA [Interacting]
     Dosage: OVERDOSE
     Route: 065
  9. COCAINE [Interacting]
     Indication: DRUG USE FOR UNKNOWN INDICATION
     Route: 065
  10. COCAINE [Interacting]
     Dosage: OVERDOSE (LETHAL CONCENTRATION)
     Route: 065
  11. NORDIAZEPAM [Suspect]
     Indication: DRUG USE FOR UNKNOWN INDICATION
     Route: 065
  12. NORDIAZEPAM [Suspect]
     Dosage: OVERDOSE
     Route: 065

REACTIONS (2)
  - DRUG TOXICITY [None]
  - OVERDOSE [None]
